FAERS Safety Report 19020526 (Version 4)
Quarter: 2021Q2

REPORT INFORMATION
  Report Type: Other
  Country: US (occurrence: US)
  Receive Date: 20210317
  Receipt Date: 20210526
  Transmission Date: 20210717
  Serious: No
  Sender: FDA-Public Use
  Company Number: US-ROCHE-2791832

PATIENT
  Sex: Female

DRUGS (2)
  1. OCREVUS [Suspect]
     Active Substance: OCRELIZUMAB
     Indication: RELAPSING MULTIPLE SCLEROSIS
     Dosage: 300MG IV ON DAY 1 300MG IV ON DAY 15 AND 600MG IV Q 6 MONTHS
     Route: 042
     Dates: start: 20190103
  2. OCREVUS [Suspect]
     Active Substance: OCRELIZUMAB
     Dosage: ON 18/JAN/2019, 19/JUL/2019,  29/JUL/2019, 03/SEP/2020 AND 03/MAR/2020, SHE RECEIVED OCRELIZUMAB INF
     Route: 042

REACTIONS (1)
  - JC polyomavirus test positive [Unknown]
